FAERS Safety Report 5178854-3 (Version None)
Quarter: 2006Q4

REPORT INFORMATION
  Report Type: 
  Country: None (occurrence: None)
  Receive Date: 20061208
  Receipt Date: 20061129
  Transmission Date: 20070319
  Serious: Yes (Other)
  Sender: FDA-Public Use
  Company Number: 2006148655

PATIENT
  Age: 46 Year
  Sex: Female
  Weight: 74.3899 kg

DRUGS (9)
  1. CHANTIX [Suspect]
     Indication: SMOKING CESSATION THERAPY
     Dosage: 0.5 MG (0.5 MG, 1 IN 1 D); ORAL
     Route: 048
     Dates: start: 20061019, end: 20061101
  2. VALSARTAN [Concomitant]
  3. OCEAN        (BENZYL ALCOHOL, SODIUM CHLORIDE) [Concomitant]
  4. VERELAN             (VERAPAMIL HYDROCHLORIDE) [Concomitant]
  5. TOPAMAX [Concomitant]
  6. ESTRADIOL INJ [Concomitant]
  7. TRAMADOL HCL [Concomitant]
  8. SEROQUEL [Concomitant]
  9. XALATAN [Concomitant]

REACTIONS (3)
  - ALOPECIA [None]
  - NAUSEA [None]
  - SKIN BURNING SENSATION [None]
